FAERS Safety Report 14898600 (Version 1)
Quarter: 2018Q2

REPORT INFORMATION
  Report Type: Report from Study
  Country: US (occurrence: US)
  Receive Date: 20180515
  Receipt Date: 20180515
  Transmission Date: 20180711
  Serious: Yes (Other)
  Sender: FDA-Public Use
  Company Number: US-GILEAD-2018-0337744

PATIENT
  Sex: Female

DRUGS (1)
  1. LEDIPASVIR/SOFOSBUVIR [Suspect]
     Active Substance: LEDIPASVIR\SOFOSBUVIR
     Indication: CHRONIC HEPATITIS C
     Dosage: 1 DF, QD
     Route: 048
     Dates: start: 20180201

REACTIONS (7)
  - Fall [Unknown]
  - Rash macular [Not Recovered/Not Resolved]
  - Energy increased [Not Recovered/Not Resolved]
  - Loss of consciousness [Unknown]
  - Dizziness [Unknown]
  - Contusion [Unknown]
  - Therapeutic response unexpected [Not Recovered/Not Resolved]
